FAERS Safety Report 19475672 (Version 2)
Quarter: 2021Q3

REPORT INFORMATION
  Report Type: Spontaneous
  Country: US (occurrence: US)
  Receive Date: 20210630
  Receipt Date: 20210826
  Transmission Date: 20211014
  Serious: Yes (Other)
  Sender: FDA-Public Use
  Company Number: US-SA-2021SA213459

PATIENT
  Age: 59 Year
  Sex: Male

DRUGS (1)
  1. DUPIXENT [Suspect]
     Active Substance: DUPILUMAB
     Indication: DERMATITIS ATOPIC
     Dosage: 300 MG, QOW
     Route: 058
     Dates: start: 20190530

REACTIONS (5)
  - Adrenal suppression [Recovered/Resolved]
  - Rhinorrhoea [Unknown]
  - HIV infection [Unknown]
  - Sinusitis [Unknown]
  - Secretion discharge [Unknown]

NARRATIVE: CASE EVENT DATE: 2019
